FAERS Safety Report 9357238 (Version 2)
Quarter: 2013Q2

REPORT INFORMATION
  Report Type: Spontaneous
  Country: US (occurrence: None)
  Receive Date: 20130617
  Receipt Date: 20130620
  Transmission Date: 20140414
  Serious: Yes (Other)
  Sender: FDA-Public Use
  Company Number: TPA2013A05006

PATIENT
  Age: 65 Year
  Sex: Male

DRUGS (6)
  1. ACTOPLUS MET [Suspect]
     Indication: DIABETES MELLITUS
     Dosage: 2 IN 1,
     Route: 048
     Dates: start: 2005, end: 20130606
  2. COLCRYS (COLCHICINE) [Concomitant]
  3. VYTORIN (SIMVASTATIN, EZETIMIBE) [Concomitant]
  4. LOVAZA (OMEGA-3 MARINE TRIGLYCERIDES) [Concomitant]
  5. ASPIRIN (ACETYLSALICYLIC ACID) [Concomitant]
  6. CELEBREX (CELECOXIB) [Concomitant]

REACTIONS (1)
  - Bladder transitional cell carcinoma [None]
